FAERS Safety Report 10061908 (Version 2)
Quarter: 2014Q2

REPORT INFORMATION
  Report Type: Report from Study
  Country: JP (occurrence: JP)
  Receive Date: 20140407
  Receipt Date: 20140421
  Transmission Date: 20141212
  Serious: Yes (Other)
  Sender: FDA-Public Use
  Company Number: JP-MPIJNJ-2014JNJ001066

PATIENT
  Sex: 0

DRUGS (4)
  1. VELCADE [Suspect]
     Indication: PLASMA CELL MYELOMA
     Dosage: 1.3 MG/M2, UNK
     Route: 058
     Dates: start: 20131204, end: 20140115
  2. NORVASC [Suspect]
     Dosage: 5 MG, UNK
     Route: 048
     Dates: start: 2005, end: 20131218
  3. CYCLOPHOSPHAMIDE [Concomitant]
     Indication: PLASMA CELL MYELOMA
  4. DEXAMETHASONE [Concomitant]
     Indication: PLASMA CELL MYELOMA

REACTIONS (5)
  - Platelet count decreased [Recovered/Resolved]
  - Hyperkalaemia [Recovered/Resolved]
  - Peripheral sensory neuropathy [Recovering/Resolving]
  - Orthostatic hypotension [Recovered/Resolved]
  - Peripheral motor neuropathy [Recovered/Resolved]
